FAERS Safety Report 8025076-4 (Version None)
Quarter: 2011Q4

REPORT INFORMATION
  Report Type: 
  Country: None (occurrence: None)
  Receive Date: 20111130
  Receipt Date: 20110105
  Transmission Date: 20120403
  Serious: Yes (Other)
  Sender: FDA-Public Use
  Company Number: TRP_07493_2011

PATIENT
  Age: 51 Year
  Sex: Female
  Weight: 57.1532 kg

DRUGS (13)
  1. INTERFERON ALFACON-1 (INTERFERON ALFACON-1) (15 MICROGRAM) [Suspect]
     Indication: HEPATITIS C
     Dosage: 15 MCG, 1 IN 1 D, SUBCUTANEOUS
     Route: 058
     Dates: start: 20110103
  2. OMEPRAZOLE [Concomitant]
  3. PEPCID [Concomitant]
  4. PERI-COLACE [Concomitant]
  5. ROXICODONE [Concomitant]
  6. VALIUM [Concomitant]
  7. LACTULOSE [Concomitant]
  8. COMPAZINE [Concomitant]
  9. LAMCTAL [Concomitant]
  10. ATRIPLA [Concomitant]
  11. FLEXERIL [Concomitant]
  12. RIBAVIRIN [Suspect]
     Indication: HEPATITIS C
     Dosage: 800 MILLIGRAM DAILY, ORAL
     Route: 048
     Dates: start: 20110103
  13. MORPHINE [Concomitant]

REACTIONS (4)
  - PYREXIA [None]
  - PAIN [None]
  - HEADACHE [None]
  - CHILLS [None]
